FAERS Safety Report 9301451 (Version 2)
Quarter: 2013Q2

REPORT INFORMATION
  Report Type: Report from Study
  Country: US (occurrence: US)
  Receive Date: 20130520
  Receipt Date: 20130620
  Transmission Date: 20140414
  Serious: Yes (Life-Threatening, Other)
  Sender: FDA-Public Use
  Company Number: PHEH2013US010986

PATIENT
  Sex: Female

DRUGS (6)
  1. HYDROCHLOROTHIAZIDE,VALSARTAN [Suspect]
     Dosage: 320/25 MG
  2. BABY ASPIRIN [Concomitant]
     Dosage: UNK UKN, UNK
  3. CARVEDILOL [Concomitant]
     Dosage: UNK UKN, UNK
  4. ALPRAZOLAM [Concomitant]
     Dosage: UNK UKN, UNK
  5. SIMVASTATIN [Concomitant]
     Dosage: UNK UKN, UNK
  6. LEVOTHYROXINE [Concomitant]
     Dosage: UNK UKN, UNK

REACTIONS (2)
  - Feeling abnormal [Unknown]
  - Hypertension [Unknown]
